FAERS Safety Report 20968614 (Version 1)
Quarter: 2022Q2

REPORT INFORMATION
  Report Type: Report from Study
  Country: FR (occurrence: FR)
  Receive Date: 20220616
  Receipt Date: 20220616
  Transmission Date: 20220721
  Serious: Yes (Hospitalization, Other)
  Sender: FDA-Public Use
  Company Number: FR-TAKEDA-2022TUS039611

PATIENT
  Age: 57 Year
  Sex: Male

DRUGS (8)
  1. TEDUGLUTIDE [Suspect]
     Active Substance: TEDUGLUTIDE
     Indication: Short-bowel syndrome
     Dosage: 3.16 MILLIGRAM, QD
     Route: 042
     Dates: start: 20181023
  2. TEDUGLUTIDE [Suspect]
     Active Substance: TEDUGLUTIDE
     Indication: Short-bowel syndrome
     Dosage: 3.16 MILLIGRAM, QD
     Route: 042
     Dates: start: 20181023
  3. TEDUGLUTIDE [Suspect]
     Active Substance: TEDUGLUTIDE
     Indication: Short-bowel syndrome
     Dosage: 3.16 MILLIGRAM, QD
     Route: 042
     Dates: start: 20181023
  4. TEDUGLUTIDE [Suspect]
     Active Substance: TEDUGLUTIDE
     Indication: Short-bowel syndrome
     Dosage: 3.16 MILLIGRAM, QD
     Route: 042
     Dates: start: 20181023
  5. DAPTOMYCIN [Concomitant]
     Active Substance: DAPTOMYCIN
     Indication: Staphylococcal infection
     Dosage: 350 MILLIGRAM, QD
     Route: 042
     Dates: start: 20201117, end: 20201201
  6. DAPTOMYCIN [Concomitant]
     Active Substance: DAPTOMYCIN
     Indication: Vascular device infection
     Dosage: 350 MILLIGRAM, QD
     Route: 042
     Dates: start: 202107, end: 202108
  7. DAPTOMYCIN [Concomitant]
     Active Substance: DAPTOMYCIN
     Indication: Device related infection
     Dosage: 500 MILLIGRAM, QD
     Route: 048
     Dates: start: 20220114, end: 20220210
  8. POLARAMINE [Concomitant]
     Active Substance: DEXCHLORPHENIRAMINE MALEATE
     Indication: Drug hypersensitivity
     Dosage: UNK
     Route: 042
     Dates: start: 20201116, end: 20201116

REACTIONS (2)
  - Vascular device infection [Recovered/Resolved]
  - Staphylococcal infection [Recovered/Resolved]

NARRATIVE: CASE EVENT DATE: 20210730
